FAERS Safety Report 7467318-X (Version None)
Quarter: 2011Q2

REPORT INFORMATION
  Report Type: 
  Country: None (occurrence: None)
  Receive Date: 20110509
  Receipt Date: 20101203
  Transmission Date: 20111010
  Serious: No
  Sender: FDA-Public Use
  Company Number: US-ALEXION-A201001551

PATIENT
  Sex: Female

DRUGS (3)
  1. PREDNISONE [Suspect]
     Indication: ARTHRITIS
     Dosage: 35 MG, BID
  2. SOLIRIS [Suspect]
     Dosage: 2.5 MG, UNK
  3. SOLIRIS [Suspect]
     Indication: PAROXYSMAL NOCTURNAL HAEMOGLOBINURIA
     Route: 042

REACTIONS (5)
  - CARPAL TUNNEL SYNDROME [None]
  - TENDONITIS [None]
  - FATIGUE [None]
  - JOINT SWELLING [None]
  - MENISCUS LESION [None]
